FAERS Safety Report 5660849-4 (Version None)
Quarter: 2008Q1

REPORT INFORMATION
  Report Type: 
  Country: None (occurrence: None)
  Receive Date: 20080311
  Receipt Date: 20080306
  Transmission Date: 20080703
  Serious: Yes (Hospitalization, Other)
  Sender: FDA-Public Use
  Company Number: JP-ALLERGAN-0802765US

PATIENT
  Sex: Male

DRUGS (3)
  1. BLINDED BOTOX PLACEBO [Suspect]
     Indication: DRUG USE FOR UNKNOWN INDICATION
     Dosage: 300 UNITS, SINGLE
     Route: 030
     Dates: start: 20080110, end: 20080110
  2. BLINDED BOTULINUM TOXIN TYPE A - GENERAL [Suspect]
     Indication: DRUG USE FOR UNKNOWN INDICATION
     Dosage: 300 UNITS, SINGLE
     Route: 030
     Dates: start: 20080110, end: 20080110
  3. NITROPEN (NITROGLYCERIN) [Concomitant]
     Indication: ANGINA PECTORIS
     Dosage: 0.3 MG, QD
     Route: 048
     Dates: start: 20080208, end: 20080227

REACTIONS (1)
  - ANGINA PECTORIS [None]
